FAERS Safety Report 8141278-0 (Version None)
Quarter: 2012Q1

REPORT INFORMATION
  Report Type: 
  Country: None (occurrence: None)
  Receive Date: 20120216
  Receipt Date: 20120206
  Transmission Date: 20120608
  Serious: Yes (Other)
  Sender: FDA-Public Use
  Company Number: JP-ROCHE-1037885

PATIENT

DRUGS (7)
  1. HERCEPTIN [Suspect]
     Indication: BREAST CANCER
     Dosage: LOADING DOSE. OVER 90 MINUTES ON DAY 1
     Route: 042
  2. EPIRUBICIN HYDROCHLORIDE [Suspect]
     Indication: BREAST CANCER
     Dosage: ON DAY 1
     Route: 042
  3. HERCEPTIN [Suspect]
     Dosage: MAINTENANCE DOSE. OVER 30 MINUTES
  4. CYCLOPHOSPHAMIDE [Suspect]
     Indication: BREAST CANCER
     Dosage: ON DAY 1
     Route: 042
  5. DOCETAXEL [Suspect]
     Indication: BREAST CANCER
     Dosage: OVER 1 HOUR ON DAY 1
     Route: 042
  6. FLUOROURACIL [Suspect]
     Indication: BREAST CANCER
     Dosage: ON DAY 1
     Route: 042
  7. PACLITAXEL [Suspect]
     Indication: BREAST CANCER
     Dosage: OVER 1 HOUR ON DAYS 1, 8, AND 15 EVERY 3 WEEKS
     Route: 042

REACTIONS (8)
  - ANAEMIA [None]
  - OEDEMA PERIPHERAL [None]
  - LEFT VENTRICULAR DYSFUNCTION [None]
  - HYPERGLYCAEMIA [None]
  - NEUTROPENIA [None]
  - NEUROTOXICITY [None]
  - HAEMATOTOXICITY [None]
  - FEBRILE NEUTROPENIA [None]
